FAERS Safety Report 8579691-X (Version None)
Quarter: 2012Q2

REPORT INFORMATION
  Report Type: 
  Country: None (occurrence: None)
  Receive Date: 20120423
  Receipt Date: 20090619
  Transmission Date: 20120825
  Serious: Yes (Other)
  Sender: FDA-Public Use
  Company Number: PHHY2009US66484

PATIENT
  Age: 33 Year
  Sex: Male

DRUGS (1)
  1. EXJADE [Suspect]
     Dosage: 1250 MG, QD, ORAL
     Route: 048

REACTIONS (5)
  - RASH GENERALISED [None]
  - HYPERSENSITIVITY [None]
  - ERYTHEMA [None]
  - SWELLING FACE [None]
  - MECHANICAL VENTILATION [None]
